FAERS Safety Report 7524548-6 (Version None)
Quarter: 2011Q2

REPORT INFORMATION
  Report Type: 
  Country: None (occurrence: None)
  Receive Date: 20110606
  Receipt Date: 20101227
  Transmission Date: 20111010
  Serious: Yes (Hospitalization)
  Sender: FDA-Public Use
  Company Number: US-BAYER-201011508NA

PATIENT
  Age: 28 Year
  Sex: Female
  Weight: 99.2 kg

DRUGS (14)
  1. ADVIL [Concomitant]
  2. AMOXICILLIN [Concomitant]
     Dosage: UNK
     Route: 048
     Dates: start: 20071101
  3. CEFDINIR [Concomitant]
     Dosage: UNK
     Route: 048
     Dates: start: 20070818
  4. MIGRANAL [Concomitant]
     Indication: MIGRAINE
     Route: 045
     Dates: start: 20040801, end: 20081201
  5. FLUTICASONE PROPIONATE [Concomitant]
  6. TYLENOL (CAPLET) [Concomitant]
     Indication: PAIN MANAGEMENT
  7. YAZ [Suspect]
     Indication: MENORRHAGIA
  8. NEXIUM [Concomitant]
     Indication: GASTROOESOPHAGEAL REFLUX DISEASE
     Dates: start: 20050901, end: 20080801
  9. NEXIUM [Concomitant]
     Dosage: UNK
     Route: 048
     Dates: start: 20071101
  10. CEFDINIR [Concomitant]
     Dosage: UNK
     Dates: start: 20071126
  11. YAZ [Suspect]
     Indication: ACNE
     Dosage: UNK UNK, QD
     Route: 048
     Dates: start: 20070801, end: 20080101
  12. MOTRIN [Concomitant]
  13. NAPROXEN [Concomitant]
     Dosage: UNK
     Route: 048
     Dates: start: 20071003
  14. ACETAMINOPHEN AND HYDROCODONE BITARTRATE [Concomitant]
     Dosage: UNK
     Dates: start: 20071227

REACTIONS (4)
  - DEEP VEIN THROMBOSIS [None]
  - CHEST PAIN [None]
  - PULMONARY EMBOLISM [None]
  - DYSPNOEA [None]
